FAERS Safety Report 7559241-7 (Version None)
Quarter: 2011Q2

REPORT INFORMATION
  Report Type: 
  Country: None (occurrence: None)
  Receive Date: 20110621
  Receipt Date: 20110608
  Transmission Date: 20111010
  Serious: Yes (Hospitalization, Other)
  Sender: FDA-Public Use
  Company Number: US-ELI_LILLY_AND_COMPANY-US200911002945

PATIENT
  Sex: Female

DRUGS (2)
  1. FORTEO [Suspect]
     Indication: RHEUMATOID ARTHRITIS
     Dosage: 20 UG, QD
     Route: 058
     Dates: start: 20090903, end: 20091101
  2. MORPHINE [Concomitant]

REACTIONS (5)
  - ADVERSE DRUG REACTION [None]
  - OFF LABEL USE [None]
  - MEDICAL DEVICE COMPLICATION [None]
  - LOCALISED INFECTION [None]
  - SEPSIS [None]
